FAERS Safety Report 7910674 (Version 2)
Quarter: 2012Q4

REPORT INFORMATION
  Report Type: Spontaneous
  Country: NZ (occurrence: None)
  Receive Date: 20110331
  Receipt Date: 20120426
  Transmission Date: 20130627
  Serious: Yes (Death, Hospitalization)
  Sender: FDA-Public Use
  Company Number: 2011GW000196

PATIENT
  Age: 78 Year
  Sex: Male

DRUGS (16)
  1. IMIQUIMOD [Suspect]
     Indication: GENITAL HERPES
     Dosage: 5 PCT;QOD;TOP
     Route: 061
  2. RITUXIMAB [Suspect]
     Indication: B-CELL UNCLASSIFIABLE LYMPHOMA LOW GRADE
  3. FLUDARABINE [Suspect]
     Indication: B-CELL UNCLASSIFIABLE LYMPHOMA LOW GRADE
  4. MITOXANTRONE HYDROCHLORIDE [Suspect]
     Indication: B-CELL UNCLASSIFIABLE LYMPHOMA LOW GRADE
  5. ACYCLOVIR [Suspect]
     Indication: GENITAL HERPES
     Dosage: 400 MG;TID;PO ; 400 MG;PO
     Route: 048
  6. ACYCLOVIR [Suspect]
     Indication: GENITAL HERPES
     Dosage: 750 MG;IV
     Route: 042
  7. CEFTRIAXONE [Suspect]
     Indication: GENITAL HERPES
     Dosage: 2 GM;QD;IV
     Route: 042
  8. METRONIDAZOLE [Suspect]
     Indication: GENITAL HERPES
     Dosage: 400 MG;TID;PO ; 400 MG;TID;PO
     Route: 048
  9. BACTRIM [Suspect]
     Indication: GENITAL HERPES
     Dosage: 960 MG;TID;PO
     Route: 048
  10. FOSCARNET SODIUM [Suspect]
     Indication: GENITAL HERPES
     Dosage: 2.8 GM;TID;IV
     Route: 042
  11. VALACYCLOVIR [Suspect]
     Indication: GENITAL HERPES
     Dosage: 500 MG;BID
  12. CYCLOPHOSPHAMIDE [Suspect]
     Indication: B-CELL UNCLASSIFIABLE LYMPHOMA LOW GRADE
  13. VINCRISTINE SULFATE [Suspect]
     Indication: B-CELL UNCLASSIFIABLE LYMPHOMA LOW GRADE
  14. PREDNISOLONE [Suspect]
     Indication: B-CELL UNCLASSIFIABLE LYMPHOMA LOW GRADE
  15. CHLORAMBUCIL [Suspect]
     Indication: B-CELL UNCLASSIFIABLE LYMPHOMA LOW GRADE
  16. AMOXICILLIN AND CLAVULANATE POTASSIUM [Suspect]
     Indication: GENITAL HERPES
     Dosage: 625 MG TID PO
     Route: 048

REACTIONS (8)
  - Diffuse large B-cell lymphoma [None]
  - Anal ulcer [None]
  - Herpes simplex [None]
  - Disease recurrence [None]
  - Staphylococcus test positive [None]
  - Bacteroides test positive [None]
  - Staphylococcus test positive [None]
  - Bacteroides test positive [None]
